FAERS Safety Report 8891238 (Version 1)
Quarter: 2012Q4

REPORT INFORMATION
  Report Type: 
  Country: DE (occurrence: DE)
  Receive Date: 20121107
  Receipt Date: 20121107
  Transmission Date: 20130627
  Serious: Yes (Other)
  Sender: FDA-Public Use
  Company Number: DE-INCYTE CORPORATION-2012IN002178

PATIENT
  Age: 70 Year
  Sex: Male

DRUGS (2)
  1. JAKAVI [Suspect]
     Indication: MYELOPROLIFERATIVE DISORDER
     Dosage: 2x5 mg, UNK
     Route: 048
  2. JAKAVI [Suspect]
     Dosage: 2x5 mg, UNK
     Route: 048

REACTIONS (1)
  - Lymphocyte count increased [Unknown]
